FAERS Safety Report 12990023 (Version 1)
Quarter: 2016Q4

REPORT INFORMATION
  Report Type: Spontaneous
  Country: US (occurrence: US)
  Receive Date: 20161130
  Receipt Date: 20161130
  Transmission Date: 20170207
  Serious: Yes (Hospitalization)
  Sender: FDA-Public Use
  Company Number: None

PATIENT
  Age: 74 Year
  Sex: Male

DRUGS (1)
  1. ADCIRCA [Suspect]
     Active Substance: TADALAFIL
     Indication: STRONGYLOIDIASIS
     Route: 048

REACTIONS (2)
  - Pulmonary oedema [None]
  - Fluid retention [None]

NARRATIVE: CASE EVENT DATE: 20161030
